FAERS Safety Report 20468106 (Version 1)
Quarter: 2022Q1

REPORT INFORMATION
  Report Type: Spontaneous
  Country: CA (occurrence: CA)
  Receive Date: 20220214
  Receipt Date: 20220214
  Transmission Date: 20220423
  Serious: Yes (Other)
  Sender: FDA-Public Use
  Company Number: CA-ADVANZ PHARMA-202202000734

PATIENT

DRUGS (4)
  1. HYDROXYCHLOROQUINE [Suspect]
     Active Substance: HYDROXYCHLOROQUINE
     Indication: Product used for unknown indication
     Dosage: UNK
     Route: 065
  2. RITUXIMAB [Suspect]
     Active Substance: RITUXIMAB
     Indication: Granulomatosis with polyangiitis
     Dosage: 1000 MG ON DAY 1
     Route: 042
     Dates: start: 20220119
  3. RITUXIMAB [Suspect]
     Active Substance: RITUXIMAB
     Dosage: 1000 MG (DAY 15)
     Route: 042
  4. PROLIA [Concomitant]
     Active Substance: DENOSUMAB
     Dosage: UNK

REACTIONS (8)
  - Coeliac disease [Unknown]
  - Hypersensitivity [Unknown]
  - Discomfort [Unknown]
  - Swelling [Recovered/Resolved]
  - Injection site extravasation [Recovered/Resolved]
  - Urticaria [Unknown]
  - Intentional product use issue [Unknown]
  - Off label use [Unknown]
